FAERS Safety Report 10928406 (Version 1)
Quarter: 2015Q1

REPORT INFORMATION
  Report Type: Report from Study
  Country: US (occurrence: US)
  Receive Date: 20150319
  Receipt Date: 20150319
  Transmission Date: 20150721
  Serious: Yes (Hospitalization)
  Sender: FDA-Public Use
  Company Number: US-ROCHE-1553036

PATIENT
  Age: 60 Year
  Sex: Male

DRUGS (3)
  1. BEVACIZUMAB [Suspect]
     Active Substance: BEVACIZUMAB
     Indication: GLIOBLASTOMA
     Route: 042
     Dates: start: 20140820
  2. BLINDED AMG 386 [Suspect]
     Active Substance: TREBANANIB
     Indication: GLIOBLASTOMA
     Dosage: CYCLE-28 DAYS?DATE OF LAST DOSE OF BEVACIZUMAB PRIOR TO SAE: 21/JAN/2015
     Route: 042
  3. AMBIEN [Suspect]
     Active Substance: ZOLPIDEM TARTRATE
     Indication: GLIOBLASTOMA
     Route: 065

REACTIONS (1)
  - Confusional state [Unknown]

NARRATIVE: CASE EVENT DATE: 20150125
